FAERS Safety Report 26200623 (Version 1)
Quarter: 2025Q4

REPORT INFORMATION
  Report Type: Spontaneous
  Country: CN (occurrence: CN)
  Receive Date: 20251225
  Receipt Date: 20251225
  Transmission Date: 20260117
  Serious: Yes (Hospitalization, Other)
  Sender: BAXTER
  Company Number: None

PATIENT
  Age: 8 Year
  Sex: Female
  Weight: 22.2 kg

DRUGS (5)
  1. CYCLOPHOSPHAMIDE [Suspect]
     Active Substance: CYCLOPHOSPHAMIDE
     Indication: Acute lymphocytic leukaemia
     Dosage: 0.86 G, QD (WITH 0.9% NS 250ML), (D1)
     Route: 041
     Dates: start: 20250711, end: 20250711
  2. SODIUM CHLORIDE [Suspect]
     Active Substance: SODIUM CHLORIDE
     Dosage: 250 ML, QD (WITH CYCLOPHOSPHAMIDE FOR INJECTION), (D1)
     Route: 041
     Dates: start: 20250711, end: 20250711
  3. DEXTROSE\SODIUM CHLORIDE [Suspect]
     Active Substance: DEXTROSE\SODIUM CHLORIDE
     Dosage: 250 ML, BID, [Q12H (6 TIMES IN TOTAL)], (4:1) GNS WITH CYTARABINE FOR INJECTION
     Route: 041
     Dates: start: 20250711, end: 20250713
  4. MERCAPTOPURINE [Suspect]
     Active Substance: MERCAPTOPURINE
     Indication: Acute lymphocytic leukaemia
     Dosage: 43 MG, QD, QN (D1-D7)
     Route: 048
     Dates: start: 20250711, end: 20250717
  5. CYTARABINE [Suspect]
     Active Substance: CYTARABINE
     Indication: Acute lymphocytic leukaemia
     Dosage: 0.86 G, BID [Q12H (6 TIMES IN TOTAL)], (WITH (4:1) GNS 250ML)
     Route: 041
     Dates: start: 20250711, end: 20250713

REACTIONS (1)
  - Myelosuppression [Recovering/Resolving]

NARRATIVE: CASE EVENT DATE: 20250718
